FAERS Safety Report 5554469-X (Version None)
Quarter: 2007Q4

REPORT INFORMATION
  Report Type: 
  Country: None (occurrence: None)
  Receive Date: 20071213
  Receipt Date: 20071129
  Transmission Date: 20080405
  Serious: Yes (Hospitalization, Other)
  Sender: FDA-Public Use
  Company Number: US-AMGEN-STX254780

PATIENT
  Sex: Female

DRUGS (6)
  1. ENBREL [Suspect]
     Indication: RHEUMATOID ARTHRITIS
     Route: 058
     Dates: start: 19981201
  2. UNSPECIFIED INHALER [Concomitant]
  3. RITUXAN [Concomitant]
     Route: 065
  4. HUMIRA [Concomitant]
     Route: 065
     Dates: start: 20060301, end: 20060501
  5. ORENCIA [Concomitant]
     Route: 065
     Dates: start: 20060801, end: 20061001
  6. PLAQUENIL [Concomitant]
     Route: 065

REACTIONS (17)
  - ASTHMA [None]
  - DEHYDRATION [None]
  - DIZZINESS [None]
  - DYSPEPSIA [None]
  - GASTRIC DISORDER [None]
  - GASTRITIS [None]
  - GASTROOESOPHAGEAL REFLUX DISEASE [None]
  - HEADACHE [None]
  - HYPERSENSITIVITY [None]
  - INTERSTITIAL LUNG DISEASE [None]
  - IRRITABLE BOWEL SYNDROME [None]
  - ORAL FUNGAL INFECTION [None]
  - PLEURISY [None]
  - RESPIRATORY TRACT INFECTION [None]
  - RETINAL DISORDER [None]
  - RHEUMATOID ARTHRITIS [None]
  - VISUAL ACUITY REDUCED [None]
